FAERS Safety Report 6256072-5 (Version None)
Quarter: 2009Q2

REPORT INFORMATION
  Report Type: 
  Country: None (occurrence: None)
  Receive Date: 20090630
  Receipt Date: 20090630
  Transmission Date: 20091009
  Serious: No
  Sender: FDA-Public Use
  Company Number: None

PATIENT
  Age: 65 Year
  Sex: Female
  Weight: 113.3993 kg

DRUGS (1)
  1. CARVEDILOL [Suspect]
     Indication: MYOCARDIAL INFARCTION
     Dosage: 12.5 MG BID PO
     Route: 048
     Dates: start: 20090519, end: 20090618

REACTIONS (4)
  - DYSPEPSIA [None]
  - JOINT SWELLING [None]
  - OEDEMA PERIPHERAL [None]
  - URTICARIA [None]
